FAERS Safety Report 6513091-9 (Version None)
Quarter: 2009Q4

REPORT INFORMATION
  Report Type: 
  Country: None (occurrence: None)
  Receive Date: 20091222
  Receipt Date: 20091222
  Transmission Date: 20100525
  Serious: Yes (Hospitalization)
  Sender: FDA-Public Use
  Company Number: None

PATIENT
  Age: 47 Year
  Sex: Female

DRUGS (1)
  1. LEVAQUIN [Suspect]
     Indication: SINUSITIS
     Dosage: 250MG QD PO
     Route: 048
     Dates: start: 20090915, end: 20090925

REACTIONS (5)
  - ALOPECIA [None]
  - DIARRHOEA [None]
  - EPHELIDES [None]
  - GASTROENTERITIS EOSINOPHILIC [None]
  - RASH MACULAR [None]
